FAERS Safety Report 11100064 (Version 1)
Quarter: 2015Q2

REPORT INFORMATION
  Report Type: Spontaneous
  Country: FR (occurrence: FR)
  Receive Date: 20150508
  Receipt Date: 20150508
  Transmission Date: 20150821
  Serious: Yes (Other)
  Sender: FDA-Public Use
  Company Number: FR-SA-2015SA060359

PATIENT
  Age: 66 Year
  Sex: Female

DRUGS (11)
  1. AMIKACIN [Concomitant]
     Active Substance: AMIKACIN
     Dates: start: 20150130, end: 20150203
  2. TIENAM [Concomitant]
     Active Substance: CILASTATIN SODIUM\IMIPENEM
     Dates: start: 20150209, end: 20150213
  3. TRIFLUCAN [Concomitant]
     Active Substance: FLUCONAZOLE
     Dates: start: 20150206, end: 20150226
  4. LOVENOX [Suspect]
     Active Substance: ENOXAPARIN SODIUM
     Route: 058
     Dates: start: 20150130, end: 20150228
  5. TAZOCILLINE [Concomitant]
     Active Substance: PIPERACILLIN SODIUM\TAZOBACTAM SODIUM
     Dates: start: 20150130, end: 20150208
  6. AMIKACIN [Concomitant]
     Active Substance: AMIKACIN
     Dates: start: 20150209, end: 20150211
  7. TAZOCILLINE [Concomitant]
     Active Substance: PIPERACILLIN SODIUM\TAZOBACTAM SODIUM
     Dates: start: 20150213, end: 20150215
  8. AMIKACIN [Concomitant]
     Active Substance: AMIKACIN
     Dates: start: 20150226, end: 20150228
  9. INEXIUM [Concomitant]
     Active Substance: ESOMEPRAZOLE
     Dates: start: 20150130, end: 20150215
  10. INNOHEP [Suspect]
     Active Substance: TINZAPARIN SODIUM
     Route: 065
     Dates: start: 20150228
  11. PREVISCAN [Concomitant]
     Active Substance: FLUINDIONE
     Dates: start: 20150228

REACTIONS (1)
  - Hyperthermia [Unknown]

NARRATIVE: CASE EVENT DATE: 20150215
